FAERS Safety Report 15022613 (Version 9)
Quarter: 2018Q3

REPORT INFORMATION
  Report Type: Report from Study
  Country: US (occurrence: US)
  Receive Date: 20180618
  Receipt Date: 20180918
  Transmission Date: 20181010
  Serious: Yes (Life-Threatening, Hospitalization, Other)
  Sender: FDA-Public Use
  Company Number: US-GILEAD-2018-0341380

PATIENT
  Age: 67 Year
  Sex: Male
  Weight: 69.39 kg

DRUGS (37)
  1. VELETRI [Concomitant]
     Active Substance: EPOPROSTENOL
  2. CALCIUM CHLORIDE. [Concomitant]
     Active Substance: CALCIUM CHLORIDE
  3. CLOPIDROGEL SANDOZ [Concomitant]
     Active Substance: CLOPIDOGREL BISULFATE
  4. BUMEX [Concomitant]
     Active Substance: BUMETANIDE
  5. TESSALON [Concomitant]
     Active Substance: BENZONATATE
  6. OCEAN SALINE NASAL SPRAY [Concomitant]
     Active Substance: SODIUM CHLORIDE
  7. DEMADEX [Concomitant]
     Active Substance: TORSEMIDE
  8. UPTRAVI [Concomitant]
     Active Substance: SELEXIPAG
  9. HEPARIN [Concomitant]
     Active Substance: HEPARIN SODIUM
  10. POTASSIUM PHOSPHATE MONOBASIC [Concomitant]
     Active Substance: POTASSIUM PHOSPHATE, MONOBASIC
  11. SODIUM PHOSPHATE [Concomitant]
     Active Substance: SODIUM PHOSPHATE
  12. OXYGEN. [Concomitant]
     Active Substance: OXYGEN
  13. PLAVIX [Concomitant]
     Active Substance: CLOPIDOGREL BISULFATE
  14. INSPRA                             /01362602/ [Concomitant]
     Active Substance: MONTELUKAST SODIUM
  15. KLONOPIN [Concomitant]
     Active Substance: CLONAZEPAM
  16. MAGNESIUM [Concomitant]
     Active Substance: MAGNESIUM
  17. PRILOSEC [Concomitant]
     Active Substance: OMEPRAZOLE MAGNESIUM
  18. LAMISIL [Concomitant]
     Active Substance: TERBINAFINE HYDROCHLORIDE
  19. LIPITOR [Concomitant]
     Active Substance: ATORVASTATIN CALCIUM
  20. BACTROBAN [Concomitant]
     Active Substance: MUPIROCIN\MUPIROCIN CALCIUM
  21. ZAROXOLYN [Concomitant]
     Active Substance: METOLAZONE
  22. AMBRISENTAN [Suspect]
     Active Substance: AMBRISENTAN
     Indication: PULMONARY ARTERIAL HYPERTENSION
     Dosage: 10 MG, QD
     Route: 048
     Dates: start: 20161004
  23. TEMOVATE [Concomitant]
     Active Substance: CLOBETASOL PROPIONATE
  24. VOLTAREN [Concomitant]
     Active Substance: DICLOFENAC SODIUM
  25. NORCO [Concomitant]
     Active Substance: ACETAMINOPHEN\HYDROCODONE BITARTRATE
  26. ATARAX [Concomitant]
     Active Substance: HYDROXYZINE HYDROCHLORIDE
  27. MUCINEX [Concomitant]
     Active Substance: GUAIFENESIN
  28. ASPIRIN 81 [Concomitant]
     Active Substance: ASPIRIN
  29. MAGNESIUM SULFATE. [Concomitant]
     Active Substance: MAGNESIUM SULFATE
  30. TYVASO [Concomitant]
     Active Substance: TREPROSTINIL
  31. EPLERENONE. [Concomitant]
     Active Substance: EPLERENONE
  32. ADCIRCA [Concomitant]
     Active Substance: TADALAFIL
  33. NEURONTIN [Concomitant]
     Active Substance: GABAPENTIN
  34. POTASSIUM CHLORIDE. [Concomitant]
     Active Substance: POTASSIUM CHLORIDE
  35. TADALAFIL [Concomitant]
     Active Substance: TADALAFIL
  36. NEXIUM [Concomitant]
     Active Substance: ESOMEPRAZOLE MAGNESIUM
  37. FLONASE                            /00908302/ [Concomitant]
     Active Substance: MOMETASONE FUROATE

REACTIONS (22)
  - Tremor [Unknown]
  - Pulmonary hypertension [Recovered/Resolved]
  - Renal failure [Unknown]
  - Somnolence [Unknown]
  - Chest pain [Not Recovered/Not Resolved]
  - Pulmonary hypertension [Recovered/Resolved]
  - Respiratory failure [Unknown]
  - Headache [Not Recovered/Not Resolved]
  - Asthenia [Not Recovered/Not Resolved]
  - Fluid overload [Not Recovered/Not Resolved]
  - Oedema peripheral [Recovering/Resolving]
  - Right ventricular failure [Unknown]
  - Pain in jaw [Not Recovered/Not Resolved]
  - Nausea [Not Recovered/Not Resolved]
  - Dyspnoea [Recovered/Resolved]
  - Cardiac failure [Unknown]
  - Fatigue [Not Recovered/Not Resolved]
  - Pain [Not Recovered/Not Resolved]
  - Oxygen saturation decreased [Recovered/Resolved]
  - Pruritus [Not Recovered/Not Resolved]
  - Dyspnoea [Not Recovered/Not Resolved]
  - Acute kidney injury [Recovered/Resolved]

NARRATIVE: CASE EVENT DATE: 201803
